FAERS Safety Report 5399093-7 (Version None)
Quarter: 2007Q3

REPORT INFORMATION
  Report Type: 
  Country: None (occurrence: None)
  Receive Date: 20070727
  Receipt Date: 20061121
  Transmission Date: 20080115
  Serious: No
  Sender: FDA-Public Use
  Company Number: A0628290A

PATIENT
  Age: 64 Year
  Sex: Female

DRUGS (11)
  1. LOTRONEX [Suspect]
     Indication: IRRITABLE BOWEL SYNDROME
     Dosage: 1MG TWICE PER DAY
     Route: 048
     Dates: start: 20060101
  2. KEFLEX [Suspect]
     Dosage: 500MG TWICE PER DAY
     Dates: start: 20061101, end: 20061101
  3. LOMOTIL [Concomitant]
  4. EFFEXOR [Concomitant]
  5. VESICARE [Concomitant]
  6. TOPROL-XL [Concomitant]
  7. PREMARIN [Concomitant]
  8. OMEPRAZOLE [Concomitant]
  9. ZETIA [Concomitant]
  10. UNKNOWN MEDICATION [Concomitant]
  11. COMPAZINE [Concomitant]

REACTIONS (1)
  - DIARRHOEA [None]
